FAERS Safety Report 5829915-4 (Version None)
Quarter: 2008Q3

REPORT INFORMATION
  Report Type: 
  Country: None (occurrence: None)
  Receive Date: 20080801
  Receipt Date: 20080725
  Transmission Date: 20090109
  Serious: Yes (Other)
  Sender: FDA-Public Use
  Company Number: GB-BAYER-200812003BNE

PATIENT
  Age: 37 Year
  Sex: Male

DRUGS (1)
  1. SORAFENIB [Suspect]
     Indication: DRUG USE FOR UNKNOWN INDICATION

REACTIONS (3)
  - CHEST X-RAY ABNORMAL [None]
  - LOWER RESPIRATORY TRACT INFECTION [None]
  - PULMONARY TUBERCULOSIS [None]
